FAERS Safety Report 8314881-2 (Version None)
Quarter: 2012Q2

REPORT INFORMATION
  Report Type: 
  Country: None (occurrence: None)
  Receive Date: 20120426
  Receipt Date: 20110808
  Transmission Date: 20120825
  Serious: Yes (Other)
  Sender: FDA-Public Use
  Company Number: US-TEVA-US025495

PATIENT
  Sex: Male
  Weight: 3.36 kg

DRUGS (2)
  1. PROVIGIL [Suspect]
     Indication: NARCOLEPSY
     Dosage: 100 MILLIGRAM;
     Route: 048
     Dates: start: 20081001, end: 20090101
  2. ALBUTEROL [Concomitant]
     Indication: RESPIRATORY DISORDER
     Route: 065

REACTIONS (2)
  - HALLUCINATION [None]
  - HEADACHE [None]
